FAERS Safety Report 4679319-5 (Version None)
Quarter: 2005Q2

REPORT INFORMATION
  Report Type: 
  Country: None (occurrence: None)
  Receive Date: 20050602
  Receipt Date: 20050524
  Transmission Date: 20051028
  Serious: Yes (Hospitalization)
  Sender: FDA-Public Use
  Company Number: US-BRISTOL-MYERS SQUIBB COMPANY-12980660

PATIENT
  Age: 62 Year
  Sex: Female

DRUGS (3)
  1. TAXOL [Suspect]
     Indication: NEOPLASM MALIGNANT
     Dates: start: 20050329, end: 20050329
  2. CARBOPLATIN [Suspect]
     Indication: NEOPLASM MALIGNANT
     Dates: start: 20050329, end: 20050329
  3. PROCRIT [Suspect]
     Indication: ANAEMIA OF MALIGNANT DISEASE
     Route: 051
     Dates: start: 20050412, end: 20050412

REACTIONS (2)
  - ANAEMIA [None]
  - RENAL FAILURE [None]
